FAERS Safety Report 25288460 (Version 2)
Quarter: 2025Q2

REPORT INFORMATION
  Report Type: Spontaneous
  Country: RO (occurrence: RO)
  Receive Date: 20250509
  Receipt Date: 20250517
  Transmission Date: 20250717
  Serious: Yes (Hospitalization, Disabling, Other)
  Sender: ACCORD
  Company Number: RO-Accord-483008

PATIENT
  Age: 60 Year
  Sex: Male

DRUGS (3)
  1. ATORVASTATIN [Suspect]
     Active Substance: ATORVASTATIN
     Indication: Product used for unknown indication
  2. ASPIRIN [Concomitant]
     Active Substance: ASPIRIN
     Indication: Product used for unknown indication
  3. PROPRANOLOL [Concomitant]
     Active Substance: PROPRANOLOL HYDROCHLORIDE
     Indication: Product used for unknown indication

REACTIONS (10)
  - Cardiomyopathy acute [Recovered/Resolved]
  - Rhabdomyolysis [Recovered/Resolved]
  - Thrombocytopenia [Recovered/Resolved]
  - Leukocytosis [Recovered/Resolved]
  - Hepatic cytolysis [Recovered/Resolved]
  - Hyperammonaemia [Recovered/Resolved]
  - Hypocholesterolaemia [Recovered/Resolved]
  - Cell death [Recovered/Resolved]
  - Mitral valve incompetence [Recovered/Resolved]
  - Quadriparesis [Recovered/Resolved]
